FAERS Safety Report 4297242-5 (Version None)
Quarter: 2004Q1

REPORT INFORMATION
  Report Type: 
  Country: None (occurrence: None)
  Receive Date: 20040213
  Receipt Date: 20040128
  Transmission Date: 20041129
  Serious: Yes (Death)
  Sender: FDA-Public Use
  Company Number: 8005101

PATIENT
  Sex: Female

DRUGS (4)
  1. KEPPRA [Suspect]
     Indication: FIBROMYALGIA
     Dosage: 500 MG PO
     Route: 048
     Dates: start: 20030522, end: 20030523
  2. KEPPRA [Suspect]
     Indication: FIBROMYALGIA
     Dosage: 1000 MG ONCE PO
     Route: 048
     Dates: start: 20030523, end: 20030323
  3. OXYCONTIN [Suspect]
     Indication: PAIN
     Dosage: 2/D PO
     Route: 048
  4. XANAX [Suspect]
     Indication: DEPRESSION
     Dosage: 2 MG PO
     Route: 048

REACTIONS (5)
  - DRUG INEFFECTIVE [None]
  - DRUG TOXICITY [None]
  - FATIGUE [None]
  - PULSE ABSENT [None]
  - RESPIRATORY ARREST [None]
